FAERS Safety Report 6186031-2 (Version None)
Quarter: 2009Q2

REPORT INFORMATION
  Report Type: 
  Country: None (occurrence: None)
  Receive Date: 20090511
  Receipt Date: 20090428
  Transmission Date: 20091009
  Serious: Yes (Hospitalization)
  Sender: FDA-Public Use
  Company Number: TR-MERCK-0905TUR00001

PATIENT
  Age: 41 Year
  Sex: Male

DRUGS (4)
  1. PRIMAXIN [Suspect]
     Indication: PERITONITIS
     Route: 041
  2. VANCOMYCIN [Suspect]
     Indication: PERITONITIS
     Route: 065
  3. AMIKACIN [Suspect]
     Indication: PERITONITIS
     Route: 065
  4. PREDNISOLONE [Suspect]
     Indication: TINNITUS
     Route: 065

REACTIONS (1)
  - FUNGAL PERITONITIS [None]
